FAERS Safety Report 13446793 (Version 1)
Quarter: 2017Q2

REPORT INFORMATION
  Report Type: Spontaneous
  Country: IL (occurrence: IL)
  Receive Date: 20170417
  Receipt Date: 20170417
  Transmission Date: 20170830
  Serious: Yes (Other)
  Sender: FDA-Public Use
  Company Number: IL-TEVA-758932ACC

PATIENT
  Sex: Female

DRUGS (1)
  1. CARBOPLATIN. [Suspect]
     Active Substance: CARBOPLATIN
     Dosage: INFUSION RATE OF 450MG PER 0.5 HOUR

REACTIONS (4)
  - Erythema [Unknown]
  - Chest pain [Unknown]
  - Chills [Unknown]
  - Dyspnoea [Unknown]
